FAERS Safety Report 16900097 (Version 1)
Quarter: 2019Q4

REPORT INFORMATION
  Report Type: Spontaneous
  Country: FR (occurrence: FR)
  Receive Date: 20191009
  Receipt Date: 20191009
  Transmission Date: 20200122
  Serious: Yes (Disabling)
  Sender: FDA-Public Use
  Company Number: US-BRAINTREE LABORATORIES-190532-1

PATIENT
  Age: 45 Year
  Sex: Female

DRUGS (1)
  1. EZICLEN [Suspect]
     Active Substance: MAGNESIUM SULFATE\POTASSIUM SULFATE\SODIUM SULFATE
     Indication: COLONOSCOPY
     Dosage: 2 X 6 OZ. BOTTLE
     Route: 048

REACTIONS (8)
  - Tachycardia [None]
  - Chills [None]
  - Dysphonia [None]
  - Blood pressure increased [None]
  - Asthenia [None]
  - Abdominal pain [None]
  - Muscle spasms [None]
  - Partial seizures [None]

NARRATIVE: CASE EVENT DATE: 20190825
